FAERS Safety Report 7235040-0 (Version None)
Quarter: 2011Q1

REPORT INFORMATION
  Report Type: 
  Country: None (occurrence: None)
  Receive Date: 20110114
  Receipt Date: 20110114
  Transmission Date: 20110831
  Serious: Yes (Life-Threatening, Hospitalization)
  Sender: FDA-Public Use
  Company Number: None

PATIENT
  Sex: Female
  Weight: 90.7194 kg

DRUGS (1)
  1. MIRENA [Suspect]
     Indication: CONTRACEPTION
     Dates: start: 20080327, end: 20100705

REACTIONS (20)
  - VIRAL INFECTION [None]
  - MUSCLE SPASMS [None]
  - ANXIETY [None]
  - INFLUENZA LIKE ILLNESS [None]
  - PULMONARY THROMBOSIS [None]
  - DEPRESSION [None]
  - NAUSEA [None]
  - VISION BLURRED [None]
  - PAIN [None]
  - NO THERAPEUTIC RESPONSE [None]
  - SCAR [None]
  - HOT FLUSH [None]
  - PYREXIA [None]
  - PELVIC INFECTION [None]
  - HEADACHE [None]
  - DIZZINESS [None]
  - PALPITATIONS [None]
  - MALAISE [None]
  - AGITATION [None]
  - DEVICE FAILURE [None]
